FAERS Safety Report 7633014-9 (Version None)
Quarter: 2011Q3

REPORT INFORMATION
  Report Type: 
  Country: None (occurrence: None)
  Receive Date: 20110725
  Receipt Date: 20110713
  Transmission Date: 20111222
  Serious: Yes (Other)
  Sender: FDA-Public Use
  Company Number: US-UCBSA-034091

PATIENT
  Sex: Female
  Weight: 88.45 kg

DRUGS (9)
  1. REGLAN [Concomitant]
     Indication: GASTROOESOPHAGEAL REFLUX DISEASE
     Dosage: AC/HS
     Route: 048
     Dates: start: 20010101
  2. PREVACID [Concomitant]
     Indication: GASTROOESOPHAGEAL REFLUX DISEASE
     Route: 048
     Dates: start: 20010101
  3. LEVEMIR [Concomitant]
     Indication: DIABETES MELLITUS
     Dosage: 30 UNITS QHS
  4. SINGULAIR [Concomitant]
     Indication: ASTHMA
     Route: 048
     Dates: start: 20090101
  5. SYNTHROID [Concomitant]
     Indication: THYROID DISORDER
     Route: 048
  6. COUMADIN [Concomitant]
     Indication: THROMBOSIS
     Dosage: 4 MG/3 MG ALTERNATING DAYS
     Route: 048
     Dates: start: 20101101
  7. CIMZIA [Suspect]
     Indication: RHEUMATOID ARTHRITIS
     Dosage: LAST DOSE WAS ON 28-APR-2011
     Route: 058
     Dates: start: 20110401
  8. BYSTOLIC [Concomitant]
     Indication: HYPERTENSION
     Route: 048
     Dates: start: 20090101
  9. METFORMIN HCL [Concomitant]
     Indication: DIABETES MELLITUS
     Route: 048

REACTIONS (8)
  - PSORIASIS [None]
  - BLOOD GLUCOSE INCREASED [None]
  - FATIGUE [None]
  - ERYTHEMA [None]
  - SKIN EXFOLIATION [None]
  - MUCOCUTANEOUS CANDIDIASIS [None]
  - FOOD ALLERGY [None]
  - CANDIDIASIS [None]
